FAERS Safety Report 9175762 (Version 2)
Quarter: 2013Q2

REPORT INFORMATION
  Report Type: Report from Study
  Country: US (occurrence: US)
  Receive Date: 20130320
  Receipt Date: 20130430
  Transmission Date: 20140414
  Serious: Yes (Other)
  Sender: FDA-Public Use
  Company Number: US-ABBOTT-13P-163-1062334-00

PATIENT
  Age: 12 Year
  Sex: Male
  Weight: 38.59 kg

DRUGS (5)
  1. HUMIRA [Suspect]
     Indication: COLITIS ULCERATIVE
     Dates: start: 20121227, end: 20121227
  2. HUMIRA [Suspect]
     Dates: start: 20130111, end: 20130111
  3. HUMIRA [Suspect]
     Dates: start: 20130128
  4. FLAGYL [Suspect]
     Indication: COLITIS ULCERATIVE
     Dates: start: 201212, end: 201301
  5. METHOTREXATE [Concomitant]
     Indication: COLITIS ULCERATIVE
     Route: 050
     Dates: start: 201212, end: 201302

REACTIONS (5)
  - Neuropathy peripheral [Not Recovered/Not Resolved]
  - Pain in extremity [Recovering/Resolving]
  - Hypoaesthesia [Recovering/Resolving]
  - Injection site pain [Not Recovered/Not Resolved]
  - Off label use [Not Recovered/Not Resolved]
